FAERS Safety Report 17256400 (Version 1)
Quarter: 2020Q1

REPORT INFORMATION
  Report Type: Spontaneous
  Country: US (occurrence: US)
  Receive Date: 20200110
  Receipt Date: 20200110
  Transmission Date: 20200409
  Serious: Yes (Other)
  Sender: FDA-Public Use
  Company Number: US-STRIDES ARCOLAB LIMITED-2020SP000236

PATIENT
  Age: 62 Year
  Sex: Female

DRUGS (4)
  1. PAROXETINE. [Suspect]
     Active Substance: PAROXETINE
     Indication: ANXIETY
     Dosage: 10 MILLIGRAM, DAILY
     Route: 065
  2. ZOLPIDEM [Suspect]
     Active Substance: ZOLPIDEM TARTRATE
     Indication: INSOMNIA
     Dosage: 10 MILLIGRAM, AT BED TIME
     Route: 065
  3. ZOLPIDEM [Suspect]
     Active Substance: ZOLPIDEM TARTRATE
     Dosage: 10 MILLIGRAM PILLS, 2 OR 3
     Route: 065
  4. ZOLPIDEM [Suspect]
     Active Substance: ZOLPIDEM TARTRATE
     Dosage: UNK, ONE OR MORE PILLS NIGHT OR IN THE EARLY MORNING
     Route: 065

REACTIONS (11)
  - Psychotic disorder [Unknown]
  - Intentional self-injury [Unknown]
  - Agitation [Unknown]
  - Altered state of consciousness [Unknown]
  - Confabulation [Unknown]
  - Memory impairment [Unknown]
  - Delirium [Unknown]
  - Cognitive disorder [Unknown]
  - Dissociative disorder [Unknown]
  - Confusional state [Unknown]
  - Homicide [Unknown]
